FAERS Safety Report 11351912 (Version 1)
Quarter: 2015Q3

REPORT INFORMATION
  Report Type: Spontaneous
  Country: US (occurrence: US)
  Receive Date: 20150807
  Receipt Date: 20150807
  Transmission Date: 20151125
  Serious: No
  Sender: FDA-Public Use
  Company Number: US-JNJFOC-20150221425

PATIENT
  Age: 43 Year
  Sex: Male
  Weight: 79.38 kg

DRUGS (9)
  1. SUDAFED [Suspect]
     Active Substance: PSEUDOEPHEDRINE HYDROCHLORIDE
     Indication: NASOPHARYNGITIS
     Dosage: EVERY 4-6 HOURS
     Route: 048
     Dates: start: 20150201
  2. MUCINEX [Concomitant]
     Active Substance: GUAIFENESIN
     Indication: INFLUENZA
     Dosage: VERY 4-6
     Route: 065
     Dates: start: 20150201
  3. CHLORASEPTIC SORE THROAT [Concomitant]
     Active Substance: PHENOL
     Indication: INFLUENZA
     Dosage: AT BEDTIME
     Route: 065
     Dates: start: 20150201
  4. CHLORASEPTIC SORE THROAT [Concomitant]
     Active Substance: PHENOL
     Indication: NASOPHARYNGITIS
     Dosage: AT BEDTIME
     Route: 065
     Dates: start: 20150201
  5. SUDAFED [Suspect]
     Active Substance: PSEUDOEPHEDRINE HYDROCHLORIDE
     Indication: INFLUENZA
     Dosage: EVERY 4-6 HOURS
     Route: 048
     Dates: start: 20150201
  6. ADVIL [Concomitant]
     Active Substance: IBUPROFEN
     Indication: NASOPHARYNGITIS
     Dosage: 2 GELCAPS EVERY 6 HOURS
     Route: 065
     Dates: start: 20150201
  7. ALL OTHER THERAPEUTIC PRODUCTS [Concomitant]
     Active Substance: UNSPECIFIED INGREDIENT
     Dosage: THROAT LOZENGES
     Route: 065
  8. MUCINEX [Concomitant]
     Active Substance: GUAIFENESIN
     Indication: NASOPHARYNGITIS
     Dosage: VERY 4-6
     Route: 065
     Dates: start: 20150201
  9. ADVIL [Concomitant]
     Active Substance: IBUPROFEN
     Indication: INFLUENZA
     Dosage: 2 GELCAPS EVERY 6 HOURS
     Route: 065
     Dates: start: 20150201

REACTIONS (2)
  - Insomnia [Not Recovered/Not Resolved]
  - Rash [Not Recovered/Not Resolved]

NARRATIVE: CASE EVENT DATE: 20150201
